FAERS Safety Report 10409823 (Version 1)
Quarter: 2014Q3

REPORT INFORMATION
  Report Type: Report from Study
  Country: US (occurrence: None)
  Receive Date: 20140822
  Receipt Date: 20140822
  Transmission Date: 20150326
  Serious: Yes (Hospitalization)
  Sender: FDA-Public Use
  Company Number: 153505

PATIENT
  Age: 64 Year
  Sex: Male
  Weight: 113.4 kg

DRUGS (1)
  1. DAUNORUBICIN HCL INJ. 20MG/ML - BEDFORD LABS, INC. [Suspect]
     Active Substance: DAUNORUBICIN HYDROCHLORIDE
     Dosage: 140MG, INDUCTION 1X/DAY ON DAYS 1 - 3, IV BOLUS
     Route: 040
     Dates: start: 20140427, end: 20140429

REACTIONS (2)
  - Arthritis bacterial [None]
  - Neutropenia [None]

NARRATIVE: CASE EVENT DATE: 20140608
